FAERS Safety Report 5167002-1 (Version None)
Quarter: 2006Q4

REPORT INFORMATION
  Report Type: 
  Country: None (occurrence: None)
  Receive Date: 20061207
  Receipt Date: 20020417
  Transmission Date: 20070319
  Serious: Yes (Hospitalization, Disabling, Other)
  Sender: FDA-Public Use
  Company Number: US-BRISTOL-MYERS SQUIBB COMPANY-11823747

PATIENT
  Age: 53 Year
  Sex: Male

DRUGS (2)
  1. ADCORTYL INJ [Suspect]
     Indication: BACK PAIN
     Route: 008
  2. PROCAINE HCL [Suspect]
     Route: 008

REACTIONS (22)
  - ARACHNOIDITIS [None]
  - AREFLEXIA [None]
  - BACTERIAL INFECTION [None]
  - BLOOD CULTURE POSITIVE [None]
  - BONE PAIN [None]
  - COMA [None]
  - CONFUSIONAL STATE [None]
  - EXTRADURAL ABSCESS [None]
  - HAEMODIALYSIS [None]
  - INTERVERTEBRAL DISC PROTRUSION [None]
  - MEMORY IMPAIRMENT [None]
  - MENTAL DISORDER [None]
  - OFF LABEL USE [None]
  - PAIN [None]
  - PAIN IN EXTREMITY [None]
  - PARAPLEGIA [None]
  - POSTOPERATIVE INFECTION [None]
  - PROCEDURAL COMPLICATION [None]
  - PROCEDURAL PAIN [None]
  - RENAL FAILURE ACUTE [None]
  - STAPHYLOCOCCAL INFECTION [None]
  - UPPER GASTROINTESTINAL HAEMORRHAGE [None]
